FAERS Safety Report 4633353-X (Version None)
Quarter: 2005Q2

REPORT INFORMATION
  Report Type: 
  Country: None (occurrence: None)
  Receive Date: 20050408
  Receipt Date: 20050328
  Transmission Date: 20051028
  Serious: Yes (Other)
  Sender: FDA-Public Use
  Company Number: HQWYE268605NOV04

PATIENT
  Sex: Male

DRUGS (2)
  1. EFFEXOR XR [Suspect]
     Indication: ANXIETY DISORDER
     Dosage: SEE IMAGE/A FEW YEARS
     Dates: end: 20041029
  2. EFFEXOR XR [Suspect]
     Indication: ANXIETY DISORDER
     Dosage: SEE IMAGE/A FEW YEARS
     Dates: start: 20010706

REACTIONS (3)
  - DRUG WITHDRAWAL SYNDROME [None]
  - FEELING OF DESPAIR [None]
  - PAIN [None]
